FAERS Safety Report 21099651 (Version 2)
Quarter: 2022Q3

REPORT INFORMATION
  Report Type: Spontaneous
  Country: US (occurrence: US)
  Receive Date: 20220719
  Receipt Date: 20220922
  Transmission Date: 20221027
  Serious: No
  Sender: FDA-Public Use
  Company Number: US-TAKEDA-2022TUS048225

PATIENT
  Sex: Female
  Weight: 99.773 kg

DRUGS (2)
  1. NINLARO [Suspect]
     Active Substance: IXAZOMIB CITRATE
     Indication: Plasma cell myeloma
     Dosage: 4 MILLIGRAM
     Route: 048
     Dates: start: 20220622
  2. POMALYST [Concomitant]
     Active Substance: POMALIDOMIDE
     Dosage: 2 MILLIGRAM
     Route: 065
     Dates: start: 20220816

REACTIONS (2)
  - Oedema peripheral [Unknown]
  - COVID-19 [Unknown]
